FAERS Safety Report 5188898-3 (Version None)
Quarter: 2006Q4

REPORT INFORMATION
  Report Type: 
  Country: None (occurrence: None)
  Receive Date: 20061221
  Receipt Date: 20061214
  Transmission Date: 20070319
  Serious: Yes (Disabling)
  Sender: FDA-Public Use
  Company Number: MX-BOEHRINGER INGELHEIM PHARMACEUTICALS, INC.-2006-BP-14591MX

PATIENT
  Sex: Female
  Weight: 69 kg

DRUGS (2)
  1. SIFROL [Suspect]
     Indication: PARKINSON'S DISEASE
     Route: 048
  2. AMANTADINE HCL [Concomitant]
     Indication: PARKINSON'S DISEASE

REACTIONS (2)
  - ABASIA [None]
  - ASTHENIA [None]
